FAERS Safety Report 4698102-8 (Version None)
Quarter: 2005Q2

REPORT INFORMATION
  Report Type: 
  Country: None (occurrence: None)
  Receive Date: 20050621
  Receipt Date: 20050609
  Transmission Date: 20051028
  Serious: Yes (Hospitalization)
  Sender: FDA-Public Use
  Company Number: 2004094376

PATIENT
  Age: 65 Year
  Sex: Female

DRUGS (7)
  1. IRINOTECAN HCL [Suspect]
     Indication: COLON CANCER
     Dosage: (180 MG/M*2, CYCLIC), INTRAVENOUS
     Route: 042
     Dates: start: 20020612, end: 20020612
  2. LEUCOVORIN CALCIUM [Suspect]
     Indication: COLON CANCER
     Dosage: (200 MG/M*2, CYCLIC), INTRAVENOUS
     Route: 042
     Dates: start: 20020612, end: 20020612
  3. FLUOROURACIL [Suspect]
     Indication: COLON CANCER
     Dosage: (800 MG/M*2, CYCLIC), INTRAVENOUS
     Route: 042
     Dates: start: 20020612, end: 20020612
  4. FLUOROURACIL [Suspect]
     Indication: COLON CANCER
     Dosage: (1200 MG/M*2, CYCLIC), INTRAVENOUS
     Route: 042
     Dates: start: 20020612, end: 20020612
  5. PROCAPTAN (PERINDOPRIL ERBUMINE) [Concomitant]
  6. OMEPRAZOLE [Concomitant]
  7. ENOXAPARIN SODIUM [Concomitant]

REACTIONS (1)
  - HYDRONEPHROSIS [None]
